FAERS Safety Report 14115483 (Version 2)
Quarter: 2017Q4

REPORT INFORMATION
  Report Type: Spontaneous
  Country: BR (occurrence: BR)
  Receive Date: 20171023
  Receipt Date: 20171101
  Transmission Date: 20180321
  Serious: No
  Sender: FDA-Public Use
  Company Number: BR-PFIZER INC-2017451794

PATIENT
  Age: 43 Year
  Sex: Female

DRUGS (1)
  1. CARDURAN XL [Suspect]
     Active Substance: DOXAZOSIN MESYLATE
     Indication: PHAEOCHROMOCYTOMA
     Dosage: 2 MG, 1X/DAY
     Route: 048
     Dates: start: 201709

REACTIONS (5)
  - Swelling [Not Recovered/Not Resolved]
  - Product availability issue [Not Recovered/Not Resolved]
  - Fatigue [Not Recovered/Not Resolved]
  - Wrong technique in product usage process [Not Recovered/Not Resolved]
  - Product use in unapproved indication [Not Recovered/Not Resolved]

NARRATIVE: CASE EVENT DATE: 201709
